FAERS Safety Report 19574400 (Version 2)
Quarter: 2021Q3

REPORT INFORMATION
  Report Type: Spontaneous
  Country: US (occurrence: US)
  Receive Date: 20210719
  Receipt Date: 20210720
  Transmission Date: 20211014
  Serious: Yes (Death, Life-Threatening, Hospitalization, Other)
  Sender: FDA-Public Use
  Company Number: US-CIPLA LTD.-2021US05024

PATIENT

DRUGS (3)
  1. FENOFIBRATE. [Suspect]
     Active Substance: FENOFIBRATE
     Dosage: UNK
     Route: 048
  2. COLCHICINE. [Suspect]
     Active Substance: COLCHICINE
     Dosage: UNK
     Route: 048
  3. AMLODIPINE [Suspect]
     Active Substance: AMLODIPINE BESYLATE
     Dosage: UNK
     Route: 048

REACTIONS (10)
  - Completed suicide [Fatal]
  - Somnolence [Recovering/Resolving]
  - Hypotension [Not Recovered/Not Resolved]
  - Aspiration [Unknown]
  - Hepatic function abnormal [Unknown]
  - Lethargy [Unknown]
  - Cardiac arrest [Unknown]
  - Toxicity to various agents [Fatal]
  - Renal impairment [Unknown]
  - Vomiting [Unknown]
